FAERS Safety Report 4361120-3 (Version None)
Quarter: 2004Q2

REPORT INFORMATION
  Report Type: 
  Country: None (occurrence: None)
  Receive Date: 20040520
  Receipt Date: 20040316
  Transmission Date: 20050107
  Serious: Yes (Disabling, Other)
  Sender: FDA-Public Use
  Company Number: US-BRISTOL-MYERS SQUIBB COMPANY-12534681

PATIENT
  Age: 54 Year
  Sex: Female
  Weight: 52 kg

DRUGS (3)
  1. TEQUIN [Suspect]
     Indication: BRONCHIAL INFECTION
     Route: 048
     Dates: start: 20031101, end: 20031101
  2. AQUATAB DM [Concomitant]
  3. MULTIVITAMIN [Concomitant]

REACTIONS (4)
  - HALLUCINATION [None]
  - HYPOGLYCAEMIA [None]
  - INSOMNIA [None]
  - SUICIDAL IDEATION [None]
